FAERS Safety Report 8345119-8 (Version None)
Quarter: 2012Q2

REPORT INFORMATION
  Report Type: 
  Country: None (occurrence: None)
  Receive Date: 20120508
  Receipt Date: 20120426
  Transmission Date: 20120825
  Serious: Yes (Life-Threatening, Hospitalization, Congenital Anomaly, Other)
  Sender: FDA-Public Use
  Company Number: US-PFIZER INC-2012098735

PATIENT
  Sex: Male

DRUGS (17)
  1. CETIRIZINE HYDROCHLORIDE [Suspect]
     Dosage: UNK
     Route: 064
     Dates: start: 20100325
  2. AMOXICILLIN [Suspect]
     Dosage: UNK
     Route: 064
     Dates: start: 20100325
  3. TOPAMAX [Suspect]
     Dosage: 25 MG FOUR TIMES A DAY FOR 1 WEEK
     Route: 064
  4. TOPAMAX [Suspect]
     Dosage: 25 MG IN THE MORNING AND 25 MG AT NIGHT FOR 1 WEEK
     Route: 064
  5. NITROFURANTOIN [Suspect]
     Dosage: UNK
     Route: 064
  6. NAPROXEN [Suspect]
     Dosage: UNK
     Route: 064
     Dates: start: 20100325
  7. SUMITRIPTAN SUCCINATE [Suspect]
     Dosage: UNK
     Route: 064
     Dates: start: 20100325
  8. TOPAMAX [Suspect]
     Indication: MIGRAINE
     Dosage: 25 MG TWO TIMES A DAY
     Route: 064
     Dates: start: 20100315, end: 20100415
  9. FLEXERIL [Suspect]
     Indication: SCIATIC NERVE INJURY
     Dosage: 10 MG, 3X/DAY
     Route: 064
  10. MULTI-VITAMINS [Suspect]
     Dosage: UNK
     Route: 064
  11. FLUTICASONE PROPIONATE [Suspect]
     Dosage: UNK
     Route: 064
     Dates: start: 20100325
  12. OLOPATADINE HCL [Suspect]
     Dosage: UNK
     Route: 064
     Dates: start: 20100325
  13. IBUPROFEN [Suspect]
     Dosage: UNK
     Route: 064
     Dates: start: 20100325
  14. TOPAMAX [Suspect]
     Dosage: 25 MG TWO TIMES A DAY FOR 1 WEEK
     Route: 064
  15. CHERACOL /USA/ [Suspect]
     Dosage: UNK
     Route: 064
     Dates: start: 20100325
  16. VICODIN [Suspect]
     Dosage: UNK
     Route: 064
     Dates: start: 20100325
  17. AZITHROMYCIN [Suspect]
     Dosage: UNK
     Route: 064
     Dates: start: 20100325

REACTIONS (16)
  - RESPIRATORY DISORDER [None]
  - CRANIOSYNOSTOSIS [None]
  - HYPERBILIRUBINAEMIA [None]
  - PNEUMONIA ASPIRATION [None]
  - PNEUMONIA [None]
  - GASTROOESOPHAGEAL REFLUX DISEASE [None]
  - GLAUCOMA [None]
  - DEVELOPMENTAL DELAY [None]
  - BRONCHIAL HYPERREACTIVITY [None]
  - EAR INFECTION [None]
  - TORTICOLLIS [None]
  - MATERNAL EXPOSURE TIMING UNSPECIFIED [None]
  - DEAFNESS [None]
  - CLEFT PALATE [None]
  - PIERRE ROBIN SYNDROME [None]
  - BODY DYSMORPHIC DISORDER [None]
